FAERS Safety Report 17122737 (Version 1)
Quarter: 2019Q4

REPORT INFORMATION
  Report Type: Report from Study
  Country: JP (occurrence: JP)
  Receive Date: 20191206
  Receipt Date: 20191206
  Transmission Date: 20200122
  Serious: Yes (Hospitalization)
  Sender: FDA-Public Use
  Company Number: JP-ACTELION-A-CH2019-195251

PATIENT
  Age: 2 Year
  Sex: Female
  Weight: 8.47 kg

DRUGS (11)
  1. FUROSEMIDE. [Concomitant]
     Active Substance: FUROSEMIDE
  2. OPSUMIT [Suspect]
     Active Substance: MACITENTAN
     Dosage: 0.4 MG, QD
     Route: 048
     Dates: start: 20170725, end: 20170727
  3. ASPIRIN. [Concomitant]
     Active Substance: ASPIRIN
  4. ALDACTONE [Concomitant]
     Active Substance: SPIRONOLACTONE
  5. BRECRUS [Concomitant]
  6. WARFARIN K [Concomitant]
     Active Substance: WARFARIN POTASSIUM
  7. REVATIO [Concomitant]
     Active Substance: SILDENAFIL CITRATE
  8. OPSUMIT [Suspect]
     Active Substance: MACITENTAN
     Indication: PULMONARY ARTERIAL HYPERTENSION
     Dosage: 0.8 MG, QD
     Route: 048
     Dates: start: 20170728
  9. ENALART [Concomitant]
     Active Substance: ENALAPRIL MALEATE
  10. ARTIST [Concomitant]
     Active Substance: CARVEDILOL
  11. OXYGEN. [Concomitant]
     Active Substance: OXYGEN

REACTIONS (2)
  - Surgery [Unknown]
  - Vomiting [Recovered/Resolved]

NARRATIVE: CASE EVENT DATE: 20170808
